FAERS Safety Report 16216095 (Version 1)
Quarter: 2019Q2

REPORT INFORMATION
  Report Type: Spontaneous
  Country: FR (occurrence: FR)
  Receive Date: 20190419
  Receipt Date: 20190419
  Transmission Date: 20190711
  Serious: Yes (Hospitalization)
  Sender: FDA-Public Use
  Company Number: FR-ASTRAZENECA-2019SE59178

PATIENT
  Age: 67 Year
  Sex: Male

DRUGS (5)
  1. SOLUPRED [PREDNISOLONE METASULFOBENZOATE SODIUM] [Suspect]
     Active Substance: PREDNISOLONE SODIUM METAZOATE
     Dosage: 40 MG, FREQUENCY UNKNOWN
     Route: 065
     Dates: start: 20090812, end: 20090909
  2. LEXOMIL [Concomitant]
     Active Substance: BROMAZEPAM
     Dosage: UNK UNK, QD
  3. INIPOMP [Interacting]
     Active Substance: PANTOPRAZOLE SODIUM
     Indication: DUODENAL ULCER
     Dosage: 40 MG, 1X/DAY
     Route: 048
     Dates: start: 2004, end: 20090914
  4. INEXIUM [Suspect]
     Active Substance: ESOMEPRAZOLE
     Dosage: UNK
     Route: 048
     Dates: start: 20090811, end: 20090909
  5. CRESTOR [Suspect]
     Active Substance: ROSUVASTATIN CALCIUM
     Dosage: UNK
     Route: 048
     Dates: start: 2004, end: 20090912

REACTIONS (6)
  - Drug interaction [Unknown]
  - Infection [Unknown]
  - Urticaria [Recovering/Resolving]
  - Eosinophilia [Recovered/Resolved]
  - Drug eruption [Recovering/Resolving]
  - Inflammation [Unknown]

NARRATIVE: CASE EVENT DATE: 20090906
